FAERS Safety Report 8420174-5 (Version None)
Quarter: 2012Q2

REPORT INFORMATION
  Report Type: 
  Country: None (occurrence: None)
  Receive Date: 20120607
  Receipt Date: 20120529
  Transmission Date: 20120825
  Serious: No
  Sender: FDA-Public Use
  Company Number: US-SHIONOGI, INC-2012000128

PATIENT

DRUGS (4)
  1. KAPVAY [Suspect]
     Dosage: 0.1 MG AT BEDTIME FOR 1 DAY
     Dates: end: 20120324
  2. KAPVAY [Suspect]
     Dosage: 0.1 MG, BID
  3. KAPVAY [Suspect]
     Indication: ATTENTION DEFICIT/HYPERACTIVITY DISORDER
     Dosage: 0.1 MG QD AT BEDTIME
     Dates: start: 20120313
  4. ADDERALL 5 [Concomitant]
     Dosage: UNK

REACTIONS (2)
  - FALL [None]
  - DIZZINESS [None]
